FAERS Safety Report 24669301 (Version 1)
Quarter: 2024Q4

REPORT INFORMATION
  Report Type: Spontaneous
  Country: GB (occurrence: GB)
  Receive Date: 20241127
  Receipt Date: 20241127
  Transmission Date: 20250115
  Serious: Yes (Other)
  Sender: MYLAN
  Company Number: GB-MHRA-TPP25019209C22275880YC1732203452638

PATIENT
  Age: 58 Year
  Sex: Male
  Weight: 72 kg

DRUGS (3)
  1. LIPITOR [Suspect]
     Active Substance: ATORVASTATIN CALCIUM
     Indication: Ill-defined disorder
     Dosage: 20 MILLIGRAM, QD (TAKE ONE TABLET EACH DAY MORNING - THIS IS A B)
     Route: 065
     Dates: start: 20241014
  2. ATORVASTATIN [Concomitant]
     Active Substance: ATORVASTATIN
     Indication: Ill-defined disorder
     Dosage: 1 DOSAGE FORM, QD (ONE TO BE TAKEN EACH DAY - START AT 1 TABLET)
     Route: 065
     Dates: start: 20230516, end: 20241014
  3. ROSUVASTATIN [Concomitant]
     Active Substance: ROSUVASTATIN
     Indication: Ill-defined disorder
     Dosage: 1 DOSAGE FORM, QD (TAKE ONE TABLET ON MONDAY WEDNESDAY FRIDAY TO S)
     Route: 065

REACTIONS (2)
  - Dysuria [Recovering/Resolving]
  - Diarrhoea [Recovering/Resolving]
